FAERS Safety Report 17320557 (Version 2)
Quarter: 2021Q1

REPORT INFORMATION
  Report Type: Other
  Country: US (occurrence: US)
  Receive Date: 20200126
  Receipt Date: 20210125
  Transmission Date: 20210419
  Serious: No
  Sender: FDA-Public Use
  Company Number: US-ACORDA-ACO_157604_2019

PATIENT
  Sex: Female

DRUGS (4)
  1. TECFIDERA [Suspect]
     Active Substance: DIMETHYL FUMARATE
     Dosage: 240 MILLIGRAM, BID
     Route: 048
     Dates: start: 20190316
  2. AMPYRA [Suspect]
     Active Substance: DALFAMPRIDINE
     Dosage: 10MG, QD
     Route: 048
  3. TECFIDERA [Suspect]
     Active Substance: DIMETHYL FUMARATE
     Indication: MULTIPLE SCLEROSIS
     Dosage: 120 MILLIGRAM, BID
     Route: 065
     Dates: start: 20190216, end: 20190315
  4. AMPYRA [Suspect]
     Active Substance: DALFAMPRIDINE
     Indication: MULTIPLE SCLEROSIS
     Dosage: 10 MILLIGRAM, BID
     Route: 048
     Dates: start: 20151221

REACTIONS (12)
  - Urticaria [Recovered/Resolved]
  - Peroneal nerve palsy [Unknown]
  - Psychomotor hyperactivity [Unknown]
  - Pruritus [Recovered/Resolved]
  - Cognitive disorder [Unknown]
  - Back pain [Unknown]
  - Stress [Unknown]
  - Hot flush [Unknown]
  - Bradykinesia [Unknown]
  - Fatigue [Unknown]
  - Urinary tract infection [Unknown]
  - Intentional underdose [Unknown]
